FAERS Safety Report 4842620-6 (Version None)
Quarter: 2005Q4

REPORT INFORMATION
  Report Type: 
  Country: None (occurrence: None)
  Receive Date: 20051201
  Receipt Date: 20051128
  Transmission Date: 20060501
  Serious: Yes (Hospitalization)
  Sender: FDA-Public Use
  Company Number: AU-GLAXOSMITHKLINE-B0401933A

PATIENT
  Sex: Female

DRUGS (1)
  1. ROPINIROLE HCL [Suspect]
     Indication: RESTLESS LEGS SYNDROME

REACTIONS (4)
  - CHEST PAIN [None]
  - CONFUSIONAL STATE [None]
  - DYSPNOEA [None]
  - MOBILITY DECREASED [None]
